FAERS Safety Report 4939792-1 (Version None)
Quarter: 2006Q1

REPORT INFORMATION
  Report Type: 
  Country: None (occurrence: None)
  Receive Date: 20060307
  Receipt Date: 20060217
  Transmission Date: 20060701
  Serious: Yes (Hospitalization)
  Sender: FDA-Public Use
  Company Number: US-2006-003544

PATIENT

DRUGS (1)
  1. LEUKINE [Suspect]
     Dosage: INJECTION

REACTIONS (1)
  - ATRIAL FIBRILLATION [None]
